FAERS Safety Report 15103266 (Version 4)
Quarter: 2019Q2

REPORT INFORMATION
  Report Type: Spontaneous
  Country: US (occurrence: US)
  Receive Date: 20180703
  Receipt Date: 20190408
  Transmission Date: 20190711
  Serious: Yes (Death, Hospitalization)
  Sender: FDA-Public Use
  Company Number: US-PFIZER INC-2018264568

PATIENT
  Age: 66 Year
  Sex: Female
  Weight: 108 kg

DRUGS (3)
  1. IBRANCE [Suspect]
     Active Substance: PALBOCICLIB
     Indication: BREAST CANCER METASTATIC
     Dosage: 125 MG, CYCLIC (DAY 1-21 Q 28 DAYS)
     Route: 048
     Dates: start: 20180616
  2. IBRANCE [Suspect]
     Active Substance: PALBOCICLIB
     Dosage: 125 MG, DAILY
     Route: 048
     Dates: start: 201805, end: 201812
  3. LETROZOLE. [Concomitant]
     Active Substance: LETROZOLE
     Dosage: UNK

REACTIONS (8)
  - Bone pain [Unknown]
  - Diarrhoea [Unknown]
  - Sepsis [Fatal]
  - Back pain [Unknown]
  - Arthralgia [Unknown]
  - Dizziness [Unknown]
  - Pneumonia [Fatal]
  - Nausea [Unknown]

NARRATIVE: CASE EVENT DATE: 2018
